FAERS Safety Report 17593029 (Version 2)
Quarter: 2020Q3

REPORT INFORMATION
  Report Type: Spontaneous
  Country: CN (occurrence: CN)
  Receive Date: 20200327
  Receipt Date: 20200415
  Transmission Date: 20201104
  Serious: Yes (Hospitalization)
  Sender: FDA-Public Use
  Company Number: CN-CELGENEUS-CHN-20200308532

PATIENT
  Age: 63 Year
  Sex: Male
  Weight: 62.5 kg

DRUGS (15)
  1. CARBOPLATIN. [Suspect]
     Active Substance: CARBOPLATIN
     Dosage: 528 MILLIGRAM
     Route: 041
     Dates: start: 20200305
  2. MECOBALAMIN [Concomitant]
     Active Substance: METHYLCOBALAMIN
     Indication: NEURALGIA
     Dosage: 1.5 MILLIGRAM
     Route: 048
     Dates: start: 20200309
  3. SERPLULIMAB. [Suspect]
     Active Substance: SERPLULIMAB
     Indication: SQUAMOUS CELL CARCINOMA OF LUNG
     Dosage: KILOGRAM/SQMETER
     Route: 041
     Dates: start: 20200211
  4. ASPIRIN. [Concomitant]
     Active Substance: ASPIRIN
     Indication: CEREBRAL INFARCTION
     Dosage: 100 MILLIGRAM
     Route: 048
     Dates: start: 2010
  5. ROSUVASTATIN CALCIUM. [Concomitant]
     Active Substance: ROSUVASTATIN CALCIUM
     Indication: CEREBRAL INFARCTION
     Route: 048
     Dates: start: 2010
  6. ABRAXANE [Suspect]
     Active Substance: PACLITAXEL
     Dosage: 128 MILLIGRAM
     Route: 041
     Dates: start: 20200312
  7. GLYCYRRHIZIN [Concomitant]
     Active Substance: GLYCYRRHIZIN
     Indication: LIVER DISORDER
     Dosage: 75 MILLIGRAM
     Route: 048
     Dates: start: 20200223
  8. HUMAN GRANULOCYTE STIMULATING FACTOR [Concomitant]
     Indication: NEUTROPHIL COUNT DECREASED
     Dosage: 400 MICROGRAM
     Route: 058
     Dates: start: 20200315, end: 20200317
  9. ABRAXANE [Suspect]
     Active Substance: PACLITAXEL
     Indication: SQUAMOUS CELL CARCINOMA OF LUNG
     Dosage: 100 MILLIGRAM/SQ. METER
     Route: 041
     Dates: start: 20200211
  10. HUMAN GRANULOCYTE STIMULATING FACTOR [Concomitant]
     Indication: WHITE BLOOD CELL COUNT DECREASED
     Dosage: 900 MICROGRAM
     Route: 058
     Dates: start: 20200315, end: 20200315
  11. SERPLULIMAB. [Suspect]
     Active Substance: SERPLULIMAB
     Route: 041
     Dates: start: 20200305
  12. ABRAXANE [Suspect]
     Active Substance: PACLITAXEL
     Dosage: 172 MILLIGRAM
     Route: 041
     Dates: start: 20200305
  13. GABAPENTIN. [Concomitant]
     Active Substance: GABAPENTIN
     Indication: NEURALGIA
     Dosage: .6 GRAM
     Route: 048
     Dates: start: 20200309
  14. CEFTAZIDIME. [Concomitant]
     Active Substance: CEFTAZIDIME
     Indication: INFECTION
     Route: 048
  15. CARBOPLATIN. [Suspect]
     Active Substance: CARBOPLATIN
     Indication: SQUAMOUS CELL CARCINOMA OF LUNG
     Dosage: 650 MILLIGRAM
     Route: 041
     Dates: start: 20200211

REACTIONS (2)
  - White blood cell count decreased [Recovered/Resolved]
  - Neutrophil count decreased [Recovered/Resolved]

NARRATIVE: CASE EVENT DATE: 20200315
